FAERS Safety Report 15601236 (Version 4)
Quarter: 2018Q4

REPORT INFORMATION
  Report Type: Spontaneous
  Country: JP (occurrence: JP)
  Receive Date: 20181109
  Receipt Date: 20181211
  Transmission Date: 20190205
  Serious: Yes (Death)
  Sender: FDA-Public Use
  Company Number: JP-B.I. PHARMACEUTICALS,INC./RIDGEFIELD-2018-NB-005856

PATIENT
  Age: 76 Year
  Sex: Male

DRUGS (1)
  1. PRIZBIND [Suspect]
     Active Substance: IDARUCIZUMAB
     Indication: PROCOAGULANT THERAPY
     Route: 042
     Dates: start: 20181102, end: 20181102

REACTIONS (4)
  - Cardiac failure [Fatal]
  - Skull fracture [Fatal]
  - Subdural haematoma [Fatal]
  - Brain contusion [Fatal]

NARRATIVE: CASE EVENT DATE: 20181102
